FAERS Safety Report 4956779-3 (Version None)
Quarter: 2006Q1

REPORT INFORMATION
  Report Type: 
  Country: None (occurrence: None)
  Receive Date: 20060329
  Receipt Date: 20060215
  Transmission Date: 20060701
  Serious: Yes (Other)
  Sender: FDA-Public Use
  Company Number: AU-ROCHE-436982

PATIENT
  Age: 50 Year
  Sex: Male
  Weight: 80.5 kg

DRUGS (9)
  1. FUZEON [Suspect]
     Dosage: INJECTED IN ABDOMEN.
     Route: 058
     Dates: start: 20010501, end: 20050816
  2. PROTAPHANE [Suspect]
     Dosage: FREQUENCY REPORTED AS: NOCTE. INSULIN WAS INJECTED IN ABDOMEN.
     Route: 058
     Dates: start: 20030615
  3. ACTRAPID [Suspect]
     Route: 058
     Dates: start: 20000215
  4. AMPRENAVIR [Concomitant]
     Indication: SYSTEMIC ANTIVIRAL TREATMENT
     Dates: start: 20000615, end: 20050816
  5. KALETRA [Concomitant]
     Indication: SYSTEMIC ANTIVIRAL TREATMENT
     Dosage: LOPINAVIR/RITONAVIR WAS DISCONTINUED BETWEEN 01 MAY 2001 AND 26 SEPTEMBER 2001 AND WAS INTENSIFIED +
     Dates: start: 20000615, end: 20050816
  6. TENOFOVIR [Concomitant]
     Indication: SYSTEMIC ANTIVIRAL TREATMENT
     Dosage: WAS INTENSIFIED BETWEEN 06 NOVEMBER 2001 AND 16 APRIL 2003.
     Dates: start: 20010926
  7. 3TC [Concomitant]
     Indication: SYSTEMIC ANTIVIRAL TREATMENT
     Dosage: DISCONTINUED ON 01 MAY 2005 AND RESTARTED ON 30 JUNE 2004.
     Dates: start: 20000615, end: 20050816
  8. FOSAMPRENAVIR [Concomitant]
     Indication: SYSTEMIC ANTIVIRAL TREATMENT
     Dates: start: 20050816
  9. COMBIVIR [Concomitant]
     Indication: SYSTEMIC ANTIVIRAL TREATMENT
     Dates: start: 20050816

REACTIONS (2)
  - FIBROSIS [None]
  - PANNICULITIS [None]
